FAERS Safety Report 9749728 (Version 1)
Quarter: 2013Q4

REPORT INFORMATION
  Report Type: Spontaneous
  Country: US (occurrence: US)
  Receive Date: 20131212
  Receipt Date: 20131212
  Transmission Date: 20140711
  Serious: No
  Sender: FDA-Public Use
  Company Number: US-TEVA-395136USA

PATIENT
  Age: 20 Year
  Sex: Female
  Weight: 91.71 kg

DRUGS (1)
  1. PARAGARD 380A [Suspect]
     Indication: CONTRACEPTION
     Route: 015
     Dates: start: 20120628, end: 20130326

REACTIONS (3)
  - Ovarian cyst [Unknown]
  - Device expulsion [Recovered/Resolved]
  - Discomfort [Not Recovered/Not Resolved]
